FAERS Safety Report 24073917 (Version 2)
Quarter: 2024Q3

REPORT INFORMATION
  Report Type: Spontaneous
  Country: GB (occurrence: GB)
  Receive Date: 20240710
  Receipt Date: 20240715
  Transmission Date: 20241016
  Serious: Yes (Death)
  Sender: MYLAN
  Company Number: GB-MYLANLABS-2024M1064045

PATIENT
  Sex: Female

DRUGS (2)
  1. CLOZARIL [Suspect]
     Active Substance: CLOZAPINE
     Indication: Schizophrenia
     Dosage: UNK
     Route: 048
     Dates: start: 20230919
  2. CLOZARIL [Suspect]
     Active Substance: CLOZAPINE
     Dosage: 275 MILLIGRAM, BID (125MG DAILY+150MG NOCTE)
     Route: 065

REACTIONS (1)
  - Death [Fatal]
